FAERS Safety Report 5990012-9 (Version None)
Quarter: 2008Q4

REPORT INFORMATION
  Report Type: 
  Country: None (occurrence: None)
  Receive Date: 20081209
  Receipt Date: 20081209
  Transmission Date: 20090506
  Serious: Yes (Hospitalization)
  Sender: FDA-Public Use
  Company Number: None

PATIENT
  Sex: Male
  Weight: 36.9 kg

DRUGS (8)
  1. CYTOXAN [Suspect]
     Indication: EPENDYMOMA
     Dosage: 75 MG QHS OTHER
     Route: 050
     Dates: start: 20080804
  2. CELEBREX [Suspect]
     Dosage: 100MG BID OTHER
     Route: 050
     Dates: start: 20080804
  3. THALIDOMIDE [Suspect]
     Dosage: 450MG QD OTHER
     Route: 050
     Dates: start: 20080804
  4. FENOFIBRATE [Suspect]
     Dosage: 86 MG QD OTHER
     Route: 050
     Dates: start: 20080804
  5. ZANTAC [Concomitant]
  6. MIRALAX [Concomitant]
  7. BACTRIM [Concomitant]
  8. LABETALOL HCL [Concomitant]

REACTIONS (4)
  - LYMPHOPENIA [None]
  - NEUTROPENIA [None]
  - PYREXIA [None]
  - WHITE BLOOD CELL COUNT INCREASED [None]
